FAERS Safety Report 8471755-4 (Version None)
Quarter: 2012Q2

REPORT INFORMATION
  Report Type: 
  Country: None (occurrence: None)
  Receive Date: 20120627
  Receipt Date: 20111118
  Transmission Date: 20120825
  Serious: Yes (Other)
  Sender: FDA-Public Use
  Company Number: US-ROCHE-1014683

PATIENT
  Sex: Female

DRUGS (4)
  1. TRAZODONE HCL [Concomitant]
  2. KLONOPIN [Suspect]
     Indication: ANXIETY
     Route: 048
  3. SEROQUEL [Concomitant]
  4. PRISTIQ [Concomitant]
     Indication: DEPRESSION

REACTIONS (16)
  - UNEVALUABLE EVENT [None]
  - DROOLING [None]
  - CONSTIPATION [None]
  - RHINORRHOEA [None]
  - PALLOR [None]
  - DIZZINESS [None]
  - HEADACHE [None]
  - NASAL CONGESTION [None]
  - CARDIAC FLUTTER [None]
  - INCREASED TENDENCY TO BRUISE [None]
  - MUSCULAR WEAKNESS [None]
  - AMNESIA [None]
  - SOMNOLENCE [None]
  - VISION BLURRED [None]
  - TRANSIENT ISCHAEMIC ATTACK [None]
  - INSOMNIA [None]
